FAERS Safety Report 7054764-1 (Version None)
Quarter: 2010Q4

REPORT INFORMATION
  Report Type: 
  Country: None (occurrence: None)
  Receive Date: 20101018
  Receipt Date: 20101007
  Transmission Date: 20110411
  Serious: Yes (Other)
  Sender: FDA-Public Use
  Company Number: 2010SP053675

PATIENT
  Age: 58 Year
  Sex: Male

DRUGS (10)
  1. INTERFERON [Suspect]
     Indication: MULTIPLE MYELOMA
  2. DEXAMETHASONE [Suspect]
     Indication: MULTIPLE MYELOMA
     Dates: start: 20060101
  3. DEXAMETHASONE [Suspect]
     Indication: MULTIPLE MYELOMA
     Dates: start: 20070301
  4. REVLIMID [Suspect]
     Indication: MULTIPLE MYELOMA
     Dosage: 15 MG; QD; PO, 10 MG; QD; PO
     Route: 048
     Dates: start: 20070301
  5. REVLIMID [Suspect]
     Indication: MULTIPLE MYELOMA
     Dosage: 15 MG; QD; PO, 10 MG; QD; PO
     Route: 048
     Dates: start: 20070901
  6. REVLIMID [Suspect]
     Indication: MULTIPLE MYELOMA
     Dosage: 15 MG; QD; PO, 10 MG; QD; PO
     Route: 048
     Dates: start: 20100301
  7. ZOMETA [Suspect]
     Indication: MULTIPLE MYELOMA
  8. DOXIL [Suspect]
     Indication: MULTIPLE MYELOMA
     Dates: start: 20060101
  9. VINCRISTINE [Suspect]
     Indication: MULTIPLE MYELOMA
     Dates: start: 20060101
  10. VELCADE [Suspect]
     Indication: MULTIPLE MYELOMA
     Dates: start: 20070301

REACTIONS (5)
  - ACUTE MYELOID LEUKAEMIA [None]
  - FATIGUE [None]
  - MYELODYSPLASTIC SYNDROME [None]
  - OSTEONECROSIS OF JAW [None]
  - PANCYTOPENIA [None]
